FAERS Safety Report 21664900 (Version 1)
Quarter: 2022Q4

REPORT INFORMATION
  Report Type: Spontaneous
  Country: JP (occurrence: JP)
  Receive Date: 20221130
  Receipt Date: 20221130
  Transmission Date: 20230112
  Serious: Yes (Death)
  Sender: FDA-Public Use
  Company Number: JP-TAKEDA-2022TJP078084

PATIENT
  Age: 91 Year
  Sex: Female

DRUGS (1)
  1. TRINTELLIX [Suspect]
     Active Substance: VORTIOXETINE HYDROBROMIDE
     Indication: Depression
     Dosage: UNK MILLIGRAM
     Route: 048
     Dates: start: 2021

REACTIONS (1)
  - Aneurysm [Fatal]

NARRATIVE: CASE EVENT DATE: 20221001
